FAERS Safety Report 11832556 (Version 21)
Quarter: 2020Q2

REPORT INFORMATION
  Report Type: Report from Study
  Country: CA (occurrence: CA)
  Receive Date: 20151214
  Receipt Date: 20200616
  Transmission Date: 20200713
  Serious: Yes (Other)
  Sender: FDA-Public Use
  Company Number: PHHY2014CA037354

PATIENT
  Age: 54 Year
  Sex: Female

DRUGS (6)
  1. BISOPROLOL [Concomitant]
     Active Substance: BISOPROLOL
     Indication: PRODUCT USED FOR UNKNOWN INDICATION
     Dosage: 2.5 MG, UNK
     Route: 065
  2. SANDOSTATIN [Suspect]
     Active Substance: OCTREOTIDE ACETATE
     Indication: NEUROENDOCRINE TUMOUR
     Dosage: 50 UG, ONCE
     Route: 058
     Dates: start: 20140320, end: 20140320
  3. SANDOSTATIN LAR DEPOT [Suspect]
     Active Substance: OCTREOTIDE ACETATE
     Dosage: 30 MG, QMO (EVERY 4 WEEKS)
     Route: 030
  4. CODEINE [Suspect]
     Active Substance: CODEINE
     Indication: PRODUCT USED FOR UNKNOWN INDICATION
     Dosage: UNK
     Route: 065
  5. SANDOSTATIN LAR DEPOT [Suspect]
     Active Substance: OCTREOTIDE ACETATE
     Indication: NEUROENDOCRINE TUMOUR
     Dosage: 30 MG, ONCE/SINGLE
     Route: 030
     Dates: start: 20100701
  6. ASPIRIN. [Concomitant]
     Active Substance: ASPIRIN
     Indication: PRODUCT USED FOR UNKNOWN INDICATION
     Dosage: 81 MG, UNK
     Route: 065

REACTIONS (46)
  - Acne cystic [Unknown]
  - Frequent bowel movements [Recovered/Resolved]
  - Myalgia [Unknown]
  - Diarrhoea [Recovered/Resolved]
  - Abdominal pain [Recovered/Resolved]
  - Fatigue [Not Recovered/Not Resolved]
  - Anxiety [Unknown]
  - Abdominal distension [Recovering/Resolving]
  - Hyperhidrosis [Unknown]
  - Hypotension [Unknown]
  - Pulmonary mass [Unknown]
  - Headache [Not Recovered/Not Resolved]
  - Blood glucose decreased [Unknown]
  - Tremor [Unknown]
  - Hunger [Unknown]
  - Incorrect route of product administration [Unknown]
  - Tooth infection [Unknown]
  - External ear disorder [Recovered/Resolved]
  - Swelling [Unknown]
  - Visual impairment [Unknown]
  - Nausea [Unknown]
  - Flushing [Unknown]
  - Constipation [Unknown]
  - Blood pressure increased [Unknown]
  - Osteoporosis [Unknown]
  - Pubic pain [Unknown]
  - Depressed mood [Unknown]
  - Depression [Unknown]
  - Feeling hot [Unknown]
  - Frequent bowel movements [Recovered/Resolved]
  - Dyspnoea [Recovered/Resolved]
  - Asthenia [Unknown]
  - Stress [Unknown]
  - Pain [Unknown]
  - Burning sensation [Unknown]
  - Syncope [Unknown]
  - Abdominal rigidity [Unknown]
  - Gastrointestinal disorder [Unknown]
  - Erythema [Unknown]
  - Peripheral swelling [Unknown]
  - Abdominal pain [Unknown]
  - Wrong product administered [Unknown]
  - Hepatic lesion [Unknown]
  - Sinusitis [Unknown]
  - Insomnia [Unknown]
  - Arthralgia [Unknown]

NARRATIVE: CASE EVENT DATE: 20100701
